FAERS Safety Report 19805809 (Version 1)
Quarter: 2021Q3

REPORT INFORMATION
  Report Type: Spontaneous
  Country: US (occurrence: US)
  Receive Date: 20210908
  Receipt Date: 20210908
  Transmission Date: 20211014
  Serious: No
  Sender: FDA-Public Use
  Company Number: US-ASTELLAS-2021US010225

PATIENT
  Sex: Male

DRUGS (2)
  1. CASODEX [Suspect]
     Active Substance: BICALUTAMIDE
     Indication: PRODUCT USED FOR UNKNOWN INDICATION
     Dosage: UNK UNK, UNKNOWN FREQ.
     Route: 065
     Dates: start: 20201201
  2. XTANDI [Suspect]
     Active Substance: ENZALUTAMIDE
     Indication: PROSTATE CANCER
     Dosage: UNK UNK, UNKNOWN FREQ.
     Route: 065
     Dates: start: 20201201

REACTIONS (17)
  - Dysuria [Unknown]
  - Hair growth abnormal [Unknown]
  - Memory impairment [Unknown]
  - Scratch [Unknown]
  - Renal disorder [Unknown]
  - Oedema peripheral [Recovering/Resolving]
  - Micturition urgency [Unknown]
  - General physical condition abnormal [Unknown]
  - Flank pain [Unknown]
  - Hot flush [Unknown]
  - Alopecia [Unknown]
  - Swelling [Recovering/Resolving]
  - Fatigue [Unknown]
  - Haematuria [Unknown]
  - Pollakiuria [Unknown]
  - Skin atrophy [Unknown]
  - Weight decreased [Recovered/Resolved]
